FAERS Safety Report 18251668 (Version 1)
Quarter: 2020Q3

REPORT INFORMATION
  Report Type: Spontaneous
  Country: IT (occurrence: IT)
  Receive Date: 20200910
  Receipt Date: 20200910
  Transmission Date: 20201103
  Serious: Yes (Other)
  Sender: FDA-Public Use
  Company Number: IT-LUPIN PHARMACEUTICALS INC.-2020-05774

PATIENT
  Sex: Male
  Weight: 1.5 kg

DRUGS (11)
  1. ASPIRINE [Suspect]
     Active Substance: ASPIRIN
     Indication: ANTIPHOSPHOLIPID SYNDROME
  2. CYCLOPHOSPHAMIDE. [Suspect]
     Active Substance: CYCLOPHOSPHAMIDE
     Indication: ANTIPHOSPHOLIPID SYNDROME
     Dosage: UNK
     Route: 064
  3. PREDNISONE. [Suspect]
     Active Substance: PREDNISONE
     Indication: ANTIPHOSPHOLIPID SYNDROME
  4. IMMUNOGLOBULINS NOS [Suspect]
     Active Substance: IMMUNE GLOBULIN NOS
     Indication: ANTIPHOSPHOLIPID SYNDROME
  5. LOW MOLECULAR WEIGHT HEPARIN [Suspect]
     Active Substance: UNSPECIFIED INGREDIENT
     Indication: ANTIPHOSPHOLIPID SYNDROME
     Dosage: 4000 INTERNATIONAL UNIT, BID
     Route: 064
  6. HYDROXYCHLOROQUINE [Suspect]
     Active Substance: HYDROXYCHLOROQUINE
     Indication: PROPHYLAXIS OF ABORTION
     Dosage: UNK
     Route: 064
  7. HYDROXYCHLOROQUINE [Suspect]
     Active Substance: HYDROXYCHLOROQUINE
     Indication: ANTIPHOSPHOLIPID SYNDROME
     Dosage: 200 MILLIGRAM, QD
     Route: 064
  8. ASPIRINE [Suspect]
     Active Substance: ASPIRIN
     Indication: PROPHYLAXIS OF ABORTION
     Dosage: 100 MILLIGRAM, QD (LOW DOSE)
     Route: 064
  9. PREDNISONE. [Suspect]
     Active Substance: PREDNISONE
     Indication: PROPHYLAXIS OF ABORTION
     Dosage: 5 MILLIGRAM, QD
     Route: 064
  10. IMMUNOGLOBULINS NOS [Suspect]
     Active Substance: IMMUNE GLOBULIN NOS
     Indication: PROPHYLAXIS OF ABORTION
     Dosage: 400 MILLIGRAM/KILOGRAM,MONTHLY
     Route: 064
  11. WARFARIN [Suspect]
     Active Substance: WARFARIN
     Indication: ANTIPHOSPHOLIPID SYNDROME
     Dosage: UNK
     Route: 064

REACTIONS (3)
  - Foetal exposure during pregnancy [Unknown]
  - Premature baby [Unknown]
  - Low birth weight baby [Unknown]
